FAERS Safety Report 13603203 (Version 3)
Quarter: 2017Q3

REPORT INFORMATION
  Report Type: Report from Study
  Country: US (occurrence: US)
  Receive Date: 20170601
  Receipt Date: 20170807
  Transmission Date: 20171127
  Serious: Yes (Death, Hospitalization)
  Sender: FDA-Public Use
  Company Number: US-ACTELION-A-US2017-150555

PATIENT
  Age: 87 Year
  Sex: Male
  Weight: 62.59 kg

DRUGS (3)
  1. SILDENAFIL CITRATE. [Concomitant]
     Active Substance: SILDENAFIL CITRATE
  2. COUMADIN [Concomitant]
     Active Substance: WARFARIN SODIUM
  3. OPSUMIT [Suspect]
     Active Substance: MACITENTAN
     Indication: PULMONARY ARTERIAL HYPERTENSION
     Dosage: 10 MG, QD
     Route: 048

REACTIONS (7)
  - Kidney infection [Unknown]
  - Blood potassium increased [Recovering/Resolving]
  - Renal failure [Unknown]
  - Fall [Fatal]
  - Oedema peripheral [Unknown]
  - Subdural haemorrhage [Fatal]
  - International normalised ratio increased [Recovering/Resolving]
